FAERS Safety Report 21078355 (Version 1)
Quarter: 2022Q3

REPORT INFORMATION
  Report Type: Report from Study
  Country: US (occurrence: US)
  Receive Date: 20220713
  Receipt Date: 20220713
  Transmission Date: 20221026
  Serious: No
  Sender: FDA-Public Use
  Company Number: US-VANDA PHARMACEUTICALS, INC-2022TASUS005835

PATIENT
  Sex: Female
  Weight: 54.422 kg

DRUGS (1)
  1. HETLIOZ [Suspect]
     Active Substance: TASIMELTEON
     Indication: Circadian rhythm sleep disorder
     Dosage: 20 MILLIGRAM, QHS, 1 HOUR BEFORE BEDTIME
     Route: 048
     Dates: end: 20220413

REACTIONS (4)
  - Hypersomnia [Unknown]
  - Somnolence [Unknown]
  - Adverse drug reaction [Unknown]
  - Drug ineffective [Unknown]
